FAERS Safety Report 6746025-2 (Version None)
Quarter: 2010Q2

REPORT INFORMATION
  Report Type: 
  Country: None (occurrence: None)
  Receive Date: 20100526
  Receipt Date: 20100511
  Transmission Date: 20101027
  Serious: Yes (Other)
  Sender: FDA-Public Use
  Company Number: BCN-AS-2010-RR-152

PATIENT
  Age: 64 Year
  Sex: Female

DRUGS (4)
  1. SIMVASTATIN [Suspect]
     Indication: BLOOD CHOLESTEROL INCREASED
     Dosage: 40 MG
     Dates: start: 20031201, end: 20100330
  2. BISOPROLOL [Concomitant]
  3. DIGOXIN [Concomitant]
  4. WARFARIN [Concomitant]

REACTIONS (3)
  - AMNESIA [None]
  - MOOD SWINGS [None]
  - PAIN IN EXTREMITY [None]
